FAERS Safety Report 14172668 (Version 3)
Quarter: 2020Q2

REPORT INFORMATION
  Report Type: Spontaneous
  Country: US (occurrence: US)
  Receive Date: 20171109
  Receipt Date: 20200605
  Transmission Date: 20200713
  Serious: Yes (Death)
  Sender: FDA-Public Use
  Company Number: US-BAUSCH-BL-2017-030565

PATIENT
  Age: 32 Year
  Sex: Female

DRUGS (3)
  1. RELISTOR [Suspect]
     Active Substance: METHYLNALTREXONE BROMIDE
     Dosage: 8MG/0.4ML, SECOND DOSE
     Route: 065
     Dates: start: 20170703
  2. RELISTOR [Suspect]
     Active Substance: METHYLNALTREXONE BROMIDE
     Dosage: 8MG/0.4ML, THIRD DOSE
     Route: 065
     Dates: start: 20170706
  3. RELISTOR [Suspect]
     Active Substance: METHYLNALTREXONE BROMIDE
     Indication: CONSTIPATION
     Dosage: 8MG/0.4ML, FIRST DOSE
     Route: 065
     Dates: start: 20170630

REACTIONS (1)
  - Cervix cancer metastatic [Fatal]
